FAERS Safety Report 14479259 (Version 5)
Quarter: 2018Q2

REPORT INFORMATION
  Report Type: Report from Study
  Country: BE (occurrence: BE)
  Receive Date: 20180202
  Receipt Date: 20180510
  Transmission Date: 20180711
  Serious: Yes (Hospitalization, Other)
  Sender: FDA-Public Use
  Company Number: BE-ROCHE-1976871

PATIENT
  Age: 77 Year
  Sex: Female
  Weight: 48 kg

DRUGS (4)
  1. BEVACIZUMAB. [Suspect]
     Active Substance: BEVACIZUMAB
     Indication: OVARIAN CANCER
     Route: 042
     Dates: start: 20170719, end: 20170719
  2. PACLITAXEL. [Suspect]
     Active Substance: PACLITAXEL
     Indication: OVARIAN CANCER
     Route: 042
     Dates: start: 20170719, end: 20170801
  3. BEVACIZUMAB. [Suspect]
     Active Substance: BEVACIZUMAB
     Route: 042
     Dates: start: 20171017
  4. CARBOPLATIN. [Suspect]
     Active Substance: CARBOPLATIN
     Indication: OVARIAN CANCER
     Dosage: 2 AUC
     Route: 042
     Dates: start: 20170719, end: 20170801

REACTIONS (26)
  - Weight decreased [Not Recovered/Not Resolved]
  - Alopecia [Unknown]
  - Haematoma [Recovered/Resolved]
  - Epistaxis [Recovered/Resolved]
  - Vertigo [Recovered/Resolved]
  - Muscular weakness [Unknown]
  - Reactive gastropathy [Unknown]
  - Hypokalaemia [Recovered/Resolved]
  - Melaena [Recovered/Resolved]
  - Arthritis bacterial [Recovered/Resolved]
  - Bacterial diarrhoea [Recovered/Resolved]
  - Visual impairment [Not Recovered/Not Resolved]
  - Hypomagnesaemia [Recovered/Resolved]
  - Constipation [Unknown]
  - Hypokalaemia [Recovered/Resolved]
  - Nausea [Recovered/Resolved]
  - Anaemia [Recovered/Resolved]
  - Anaemia [Unknown]
  - Dry eye [Unknown]
  - Dry mouth [Unknown]
  - Abdominal pain [Recovered/Resolved]
  - Neuropathy peripheral [Unknown]
  - Proteinuria [Recovered/Resolved]
  - Duodenal ulcer [Recovered/Resolved]
  - Decreased appetite [Recovered/Resolved]
  - Dyspnoea exertional [Unknown]

NARRATIVE: CASE EVENT DATE: 20170726
